FAERS Safety Report 19078935 (Version 1)
Quarter: 2021Q1

REPORT INFORMATION
  Report Type: Spontaneous
  Country: US (occurrence: US)
  Receive Date: 20210331
  Receipt Date: 20210331
  Transmission Date: 20210420
  Serious: No
  Sender: FDA-Public Use
  Company Number: US-PFIZER INC-2021198255

PATIENT
  Age: 66 Year
  Sex: Male
  Weight: 106.67 kg

DRUGS (1)
  1. XELJANZ XR [Suspect]
     Active Substance: TOFACITINIB CITRATE
     Indication: RHEUMATOID ARTHRITIS
     Dosage: 11 MG, DAILY
     Route: 048
     Dates: start: 20201215

REACTIONS (5)
  - Dizziness [Unknown]
  - Lethargy [Unknown]
  - Condition aggravated [Unknown]
  - Fatigue [Unknown]
  - Musculoskeletal stiffness [Unknown]
